FAERS Safety Report 4540092-2 (Version None)
Quarter: 2004Q4

REPORT INFORMATION
  Report Type: 
  Country: None (occurrence: None)
  Receive Date: 20041223
  Receipt Date: 20041208
  Transmission Date: 20050328
  Serious: Yes (Hospitalization)
  Sender: FDA-Public Use
  Company Number: 2004112740

PATIENT
  Sex: Female

DRUGS (1)
  1. DETROL LA [Suspect]
     Indication: ILL-DEFINED DISORDER

REACTIONS (5)
  - CARDIAC OPERATION [None]
  - GALLBLADDER OPERATION [None]
  - HERNIA REPAIR [None]
  - VASECTOMY [None]
  - WOUND TREATMENT [None]
